FAERS Safety Report 6573819-9 (Version None)
Quarter: 2010Q1

REPORT INFORMATION
  Report Type: 
  Country: None (occurrence: None)
  Receive Date: 20100208
  Receipt Date: 20100128
  Transmission Date: 20100710
  Serious: Yes (Death, Hospitalization)
  Sender: FDA-Public Use
  Company Number: CG-MERCK-1001USA03824

PATIENT
  Age: 38 Year
  Sex: Female

DRUGS (1)
  1. STROMECTOL [Suspect]
     Route: 048
     Dates: start: 20091206, end: 20091206

REACTIONS (6)
  - CIRCULATORY COLLAPSE [None]
  - COMA [None]
  - ENCEPHALOPATHY [None]
  - HYPERTENSION [None]
  - HYPERTENSIVE ENCEPHALOPATHY [None]
  - PYREXIA [None]
